FAERS Safety Report 9426604 (Version 1)
Quarter: 2013Q3

REPORT INFORMATION
  Report Type: Spontaneous
  Country: US (occurrence: US)
  Receive Date: 20130730
  Receipt Date: 20130730
  Transmission Date: 20140515
  Serious: No
  Sender: FDA-Public Use
  Company Number: US-PFIZER INC-2013219887

PATIENT
  Age: 46 Year
  Sex: Male

DRUGS (2)
  1. DILANTIN [Suspect]
     Indication: CONVULSION
     Dosage: 400 MG (4 CAPSULES OF 100MG), 1X/DAY
     Route: 048
     Dates: start: 1987
  2. DILANTIN [Suspect]
     Indication: CONVULSION
     Dosage: 50 MG, 1X/DAY
     Route: 048
     Dates: start: 1987

REACTIONS (1)
  - Blood cholesterol increased [Not Recovered/Not Resolved]
